FAERS Safety Report 11097191 (Version 4)
Quarter: 2015Q4

REPORT INFORMATION
  Report Type: Spontaneous
  Country: BE (occurrence: BE)
  Receive Date: 20150507
  Receipt Date: 20151021
  Transmission Date: 20160304
  Serious: Yes (Death, Hospitalization)
  Sender: FDA-Public Use
  Company Number: BE-SA-2015SA056829

PATIENT
  Age: 44 Year
  Sex: Female

DRUGS (13)
  1. HALDOL [Concomitant]
     Active Substance: HALOPERIDOL
     Dosage: 2 MG/1ML, 10 DROPS-8 DR-10 DR
     Dates: start: 20150203
  2. SEROQUEL [Concomitant]
     Active Substance: QUETIAPINE FUMARATE
  3. MOVICOL [Concomitant]
     Active Substance: POLYETHYLENE GLYCOL 3350\POTASSIUM CHLORIDE\SODIUM BICARBONATE\SODIUM CHLORIDE
  4. AUBAGIO [Suspect]
     Active Substance: TERIFLUNOMIDE
     Indication: MULTIPLE SCLEROSIS
     Route: 048
     Dates: start: 20141025, end: 201504
  5. MANIPREX [Concomitant]
     Active Substance: LITHIUM CARBONATE
  6. EMCONCOR MINOR [Concomitant]
     Indication: HYPERTENSION
  7. PROVERA [Concomitant]
     Active Substance: MEDROXYPROGESTERONE ACETATE
     Indication: CONTRACEPTION
     Dates: start: 20150117
  8. ASAFLOW [Concomitant]
     Active Substance: ASPIRIN
  9. PANTOMED [Concomitant]
     Active Substance: DEXPANTHENOL
  10. SEROQUEL [Concomitant]
     Active Substance: QUETIAPINE FUMARATE
     Dosage: SEROQUEL XR
  11. KEMADRIN [Concomitant]
     Active Substance: PROCYCLIDINE HYDROCHLORIDE
     Dates: start: 20150203
  12. DOMINAL FORTE [Concomitant]
     Active Substance: PROTHIPENDYL HYDROCHLORIDE
  13. D-CURE [Concomitant]
     Dosage: AMPOULE

REACTIONS (9)
  - Vomiting [Unknown]
  - Cardiomegaly [Unknown]
  - Cyanosis [Unknown]
  - Jaundice [Unknown]
  - Diarrhoea [Unknown]
  - Nausea [Unknown]
  - Myocardial infarction [Fatal]
  - Hepatic steatosis [Unknown]
  - Liver injury [Unknown]

NARRATIVE: CASE EVENT DATE: 20150420
